FAERS Safety Report 9375223 (Version 3)
Quarter: 2014Q3

REPORT INFORMATION
  Report Type: Spontaneous
  Country: US (occurrence: US)
  Receive Date: 20130628
  Receipt Date: 20140929
  Transmission Date: 20150326
  Serious: Yes (Other)
  Sender: FDA-Public Use
  Company Number: US-009507513-1306USA013086

PATIENT
  Sex: Female

DRUGS (1)
  1. NUVARING [Suspect]
     Active Substance: ETHINYL ESTRADIOL\ETONOGESTREL
     Indication: CONTRACEPTION
     Dosage: 0.12-0.015 MG/24 HR
     Route: 067
     Dates: start: 2011

REACTIONS (12)
  - Migraine [Unknown]
  - Cerebellar infarction [Unknown]
  - Uterine leiomyoma [Unknown]
  - Abdominal pain upper [Unknown]
  - Urinary tract infection [Unknown]
  - Vomiting [Unknown]
  - Headache [Unknown]
  - Cholecystectomy [Unknown]
  - Kidney infection [Unknown]
  - Thrombosis [Unknown]
  - Pain in extremity [Unknown]
  - Nausea [Unknown]

NARRATIVE: CASE EVENT DATE: 20120328
